APPROVED DRUG PRODUCT: DICHLORPHENAMIDE
Active Ingredient: DICHLORPHENAMIDE
Strength: 50MG
Dosage Form/Route: TABLET;ORAL
Application: A218783 | Product #001 | TE Code: AB
Applicant: RISING PHARMA HOLDINGS INC
Approved: Nov 18, 2025 | RLD: No | RS: No | Type: RX